FAERS Safety Report 6876841-8 (Version None)
Quarter: 2010Q2

REPORT INFORMATION
  Report Type: 
  Country: None (occurrence: None)
  Receive Date: 20100616
  Receipt Date: 20100319
  Transmission Date: 20101027
  Serious: No
  Sender: FDA-Public Use
  Company Number: DSA_42829_2010

PATIENT
  Sex: Female

DRUGS (11)
  1. XENAZINE [Suspect]
     Indication: TARDIVE DYSKINESIA
     Dosage: 25 MG BID ORAL, 25 MG TID ORAL
     Route: 048
     Dates: start: 20100201, end: 20100317
  2. XENAZINE [Suspect]
     Indication: TARDIVE DYSKINESIA
     Dosage: 25 MG BID ORAL, 25 MG TID ORAL
     Route: 048
     Dates: start: 20100318
  3. AMBIEN [Concomitant]
  4. TRAMADOL HYDROCHLORIDE [Concomitant]
  5. LIPITOR [Concomitant]
  6. NORVASC [Concomitant]
  7. LEXAPRO [Concomitant]
  8. SYNTHROID [Concomitant]
  9. ASPIRIN [Concomitant]
  10. NEXIUM [Concomitant]
  11. VITAMIN TAB [Concomitant]

REACTIONS (3)
  - DISTURBANCE IN ATTENTION [None]
  - INSOMNIA [None]
  - RESTLESSNESS [None]
